FAERS Safety Report 5292079-2 (Version None)
Quarter: 2007Q2

REPORT INFORMATION
  Report Type: 
  Country: None (occurrence: None)
  Receive Date: 20070403
  Receipt Date: 20070320
  Transmission Date: 20071010
  Serious: Yes (Other)
  Sender: FDA-Public Use
  Company Number: 154231ISR

PATIENT
  Age: 33 Year
  Sex: Female

DRUGS (1)
  1. PREDNISOLONE [Suspect]
     Indication: BRONCHITIS
     Dosage: 25 MG (5 MG, 5 IN 1 D) ORAL
     Route: 048
     Dates: start: 20070224, end: 20070224

REACTIONS (3)
  - CHEST DISCOMFORT [None]
  - DRUG HYPERSENSITIVITY [None]
  - DYSPNOEA [None]
